FAERS Safety Report 8490408-X (Version None)
Quarter: 2012Q3

REPORT INFORMATION
  Report Type: 
  Country: None (occurrence: None)
  Receive Date: 20120705
  Receipt Date: 20120622
  Transmission Date: 20120928
  Serious: Yes (Hospitalization)
  Sender: FDA-Public Use
  Company Number: CA-ROCHE-1081536

PATIENT
  Sex: Male

DRUGS (1)
  1. VEMURAFENIB [Suspect]
     Indication: METASTATIC MALIGNANT MELANOMA
     Dosage: WILL RESTART ON 26/JUN/2012
     Route: 048
     Dates: start: 20120602, end: 20120619

REACTIONS (3)
  - DECREASED APPETITE [None]
  - CONFUSIONAL STATE [None]
  - DEHYDRATION [None]
